FAERS Safety Report 4962132-9 (Version None)
Quarter: 2006Q2

REPORT INFORMATION
  Report Type: 
  Country: None (occurrence: None)
  Receive Date: 20060404
  Receipt Date: 20060306
  Transmission Date: 20061013
  Serious: Yes (Hospitalization, Other)
  Sender: FDA-Public Use
  Company Number: US-BRISTOL-MYERS SQUIBB COMPANY-13306311

PATIENT
  Age: 51 Year
  Sex: Male

DRUGS (11)
  1. ERBITUX [Suspect]
     Indication: NEOPLASM MALIGNANT
     Route: 042
     Dates: start: 20051104, end: 20051104
  2. BENADRYL [Concomitant]
     Indication: PREMEDICATION
     Dates: start: 20051104, end: 20051104
  3. RADIATION THERAPY [Concomitant]
  4. CISPLATIN [Concomitant]
  5. TYLENOL (CAPLET) [Concomitant]
     Indication: PREMEDICATION
  6. ANZEMET [Concomitant]
     Indication: PREMEDICATION
  7. DECADRON SRC [Concomitant]
     Indication: PREMEDICATION
  8. COUMADIN [Concomitant]
  9. HYCODAN [Concomitant]
  10. ZOFRAN [Concomitant]
  11. COMPAZINE [Concomitant]

REACTIONS (4)
  - DYSPNOEA [None]
  - NEOPLASM MALIGNANT [None]
  - RESPIRATORY DISTRESS [None]
  - STRIDOR [None]
